FAERS Safety Report 9630713 (Version 1)
Quarter: 2013Q4

REPORT INFORMATION
  Report Type: Spontaneous
  Country: US (occurrence: None)
  Receive Date: 20131016
  Receipt Date: 20131016
  Transmission Date: 20140711
  Serious: Yes (Hospitalization)
  Sender: FDA-Public Use
  Company Number: 2013AP008699

PATIENT
  Sex: Male

DRUGS (1)
  1. CLOPIDOGREL [Suspect]
     Dosage: EXP DATE 08/24/2014

REACTIONS (4)
  - Malaise [None]
  - Dizziness [None]
  - Fatigue [None]
  - Pain [None]
